FAERS Safety Report 14057070 (Version 5)
Quarter: 2017Q4

REPORT INFORMATION
  Report Type: Report from Study
  Country: SI (occurrence: SI)
  Receive Date: 20171006
  Receipt Date: 20171219
  Transmission Date: 20180321
  Serious: Yes (Hospitalization, Other)
  Sender: FDA-Public Use
  Company Number: SI-BAYER-2017-166014

PATIENT
  Age: 74 Year
  Sex: Male

DRUGS (2)
  1. NEXAVAR [Suspect]
     Active Substance: SORAFENIB
     Indication: HEPATOCELLULAR CARCINOMA
     Dosage: DAILY DOSE 400 MG (2X200 MG)
     Dates: start: 20170822, end: 20170919
  2. NEXAVAR [Suspect]
     Active Substance: SORAFENIB
     Indication: HEPATOCELLULAR CARCINOMA
     Dosage: DAILY DOSE 400 MG (2X200 MG)
     Dates: start: 2017, end: 20171011

REACTIONS (11)
  - Productive cough [None]
  - Dehydration [Not Recovered/Not Resolved]
  - Oedema peripheral [Recovering/Resolving]
  - Hypertension [Not Recovered/Not Resolved]
  - Dacryocystitis [Recovering/Resolving]
  - Skin infection [Recovering/Resolving]
  - Haematochezia [Not Recovered/Not Resolved]
  - Confusional state [Not Recovered/Not Resolved]
  - Ammonia increased [Not Recovered/Not Resolved]
  - Skin mass [Recovering/Resolving]
  - Blister [Not Recovered/Not Resolved]

NARRATIVE: CASE EVENT DATE: 20170824
